FAERS Safety Report 4462060-1 (Version None)
Quarter: 2004Q3

REPORT INFORMATION
  Report Type: 
  Country: None (occurrence: None)
  Receive Date: 20040927
  Receipt Date: 20040927
  Transmission Date: 20050211
  Serious: Yes (Other)
  Sender: FDA-Public Use
  Company Number: None

PATIENT
  Age: 50 Year
  Sex: Male
  Weight: 90.7194 kg

DRUGS (2)
  1. DILTIAZEM ER 180 MG [Suspect]
     Indication: BLOOD PRESSURE
     Dosage: 1 CAPSULE BID
     Dates: start: 20040501, end: 20040530
  2. DILTIAZEM ER 180 MG [Suspect]
     Indication: BLOOD PRESSURE
     Dosage: 1 CAPSULE BID
     Dates: start: 20040923, end: 20040926

REACTIONS (2)
  - ABDOMINAL DISCOMFORT [None]
  - PHARMACEUTICAL PRODUCT COMPLAINT [None]
